FAERS Safety Report 25675460 (Version 4)
Quarter: 2025Q4

REPORT INFORMATION
  Report Type: Report from Study
  Country: GB (occurrence: GB)
  Receive Date: 20250813
  Receipt Date: 20251007
  Transmission Date: 20260117
  Serious: Yes (Other)
  Sender: SANDOZ
  Company Number: GB-002147023-NVSC2020GB209982

PATIENT
  Sex: Male

DRUGS (3)
  1. OMNITROPE [Suspect]
     Active Substance: SOMATROPIN
     Dosage: 0.2 MG, QD
     Route: 058
     Dates: start: 202503
  2. OMNITROPE [Suspect]
     Active Substance: SOMATROPIN
     Indication: Growth hormone deficiency
     Dosage: 0.3 MG, QD
     Route: 058
  3. OMNITROPE [Suspect]
     Active Substance: SOMATROPIN
     Indication: Hypopituitarism
     Dosage: 0.3 MG, QD
     Route: 058

REACTIONS (28)
  - Coronavirus infection [Unknown]
  - Influenza like illness [Unknown]
  - Dyspnoea [Unknown]
  - Chest pain [Unknown]
  - Concomitant disease progression [Unknown]
  - Endocrine disorder [Unknown]
  - Nervous system disorder [Unknown]
  - Blood pressure increased [Unknown]
  - Disturbance in attention [Unknown]
  - Abdominal pain upper [Unknown]
  - Bedridden [Unknown]
  - Electric shock sensation [Not Recovered/Not Resolved]
  - Asthenia [Unknown]
  - Malaise [Unknown]
  - General physical health deterioration [Unknown]
  - Exercise tolerance decreased [Unknown]
  - Brain fog [Unknown]
  - Fatigue [Not Recovered/Not Resolved]
  - Myalgia [Unknown]
  - Nausea [Recovering/Resolving]
  - Fatigue [Not Recovered/Not Resolved]
  - Pain [Recovering/Resolving]
  - Overdose [Unknown]
  - Therapeutic product effect incomplete [Unknown]
  - Poor quality product administered [Unknown]
  - Expired product administered [Unknown]
  - Product storage error [Unknown]
  - Intentional product use issue [Unknown]

NARRATIVE: CASE EVENT DATE: 20250101
